FAERS Safety Report 17039915 (Version 3)
Quarter: 2020Q1

REPORT INFORMATION
  Report Type: Spontaneous
  Country: JP (occurrence: JP)
  Receive Date: 20191116
  Receipt Date: 20200120
  Transmission Date: 20200409
  Serious: Yes (Other)
  Sender: FDA-Public Use
  Company Number: JP-AMGEN-JPNSP2019158619

PATIENT
  Age: 68 Year
  Sex: Female
  Weight: 50 kg

DRUGS (6)
  1. PARIET [Concomitant]
     Active Substance: RABEPRAZOLE SODIUM
     Dosage: 10 MILLIGRAM, QD
  2. EVENITY [Suspect]
     Active Substance: ROMOSOZUMAB-AQQG
     Indication: OSTEOPOROSIS
     Dosage: 210 MILLIGRAM
     Route: 058
     Dates: start: 20190415, end: 20190820
  3. CADUET [Concomitant]
     Active Substance: AMLODIPINE BESYLATE\ATORVASTATIN CALCIUM
     Dosage: 1 DOSAGE FORM  (ONE TABLET), QD
     Dates: start: 20190122
  4. EDIROL [Concomitant]
     Active Substance: ELDECALCITOL
     Dosage: 1 DOSAGE FORM (1 CAPSULE), QD
     Dates: start: 201709
  5. CELECOX [Concomitant]
     Active Substance: CELECOXIB
     Dosage: 100 MILLIGRAM, BID
     Dates: end: 20190909
  6. PURSENNID [SENNA ALEXANDRINA LEAF] [Concomitant]
     Dosage: 2 DOSAGE FORM (2 TABLETS), QD

REACTIONS (1)
  - Chest discomfort [Recovering/Resolving]

NARRATIVE: CASE EVENT DATE: 201908
